FAERS Safety Report 5118254-5 (Version None)
Quarter: 2006Q4

REPORT INFORMATION
  Report Type: 
  Country: None (occurrence: None)
  Receive Date: 20061002
  Receipt Date: 20060717
  Transmission Date: 20070319
  Serious: No
  Sender: FDA-Public Use
  Company Number: US-BRISTOL-MYERS SQUIBB COMPANY-13444369

PATIENT
  Age: 77 Year
  Sex: Female
  Weight: 50 kg

DRUGS (16)
  1. ORENCIA [Suspect]
     Indication: RHEUMATOID ARTHRITIS
     Route: 042
     Dates: start: 20060509
  2. ARAVA [Concomitant]
  3. FOSAMAX [Concomitant]
  4. LEVOXYL [Concomitant]
  5. ALLEGRA [Concomitant]
     Dosage: 120 TO 180 MG QD
  6. DARVOCET [Concomitant]
  7. AMBIEN [Concomitant]
  8. IMITREX [Concomitant]
     Indication: MIGRAINE
  9. LOCOID [Concomitant]
  10. SUDAFED 12 HOUR [Concomitant]
  11. NASONEX [Concomitant]
  12. CALCIUM GLUCONATE [Concomitant]
  13. VITAMIN E [Concomitant]
  14. CENTRUM SILVER [Concomitant]
  15. TRENTAL [Concomitant]
  16. PREVACID [Concomitant]

REACTIONS (4)
  - ARTHRALGIA [None]
  - FATIGUE [None]
  - MIGRAINE [None]
  - SINUS HEADACHE [None]
